FAERS Safety Report 21689633 (Version 1)
Quarter: 2022Q4

REPORT INFORMATION
  Report Type: Report from Study
  Country: US (occurrence: US)
  Receive Date: 20221206
  Receipt Date: 20221206
  Transmission Date: 20230113
  Serious: No
  Sender: FDA-Public Use
  Company Number: US-ABBVIE-4183011

PATIENT
  Sex: Female

DRUGS (1)
  1. HUMIRA [Suspect]
     Active Substance: ADALIMUMAB
     Indication: Psoriatic arthropathy
     Dosage: FORM STRENGTH: 40 MILLIGRAM, DRUG END DATE- 2022, EVENT START DATE-2022
     Route: 058
     Dates: start: 20220812

REACTIONS (4)
  - Muscle spasms [Unknown]
  - Blood pressure increased [Unknown]
  - Syncope [Unknown]
  - Myalgia [Unknown]
